FAERS Safety Report 6896932-5 (Version None)
Quarter: 2010Q3

REPORT INFORMATION
  Report Type: 
  Country: None (occurrence: None)
  Receive Date: 20100802
  Receipt Date: 20070424
  Transmission Date: 20110219
  Serious: No
  Sender: FDA-Public Use
  Company Number: US-PFIZER INC-2007004548

PATIENT
  Sex: Female
  Weight: 58.97 kg

DRUGS (5)
  1. LYRICA [Suspect]
     Indication: NEURALGIA
     Route: 048
     Dates: start: 20061101
  2. LYRICA [Suspect]
     Indication: NEUROPATHY PERIPHERAL
  3. VICODIN [Concomitant]
  4. VYTORIN [Concomitant]
  5. KLONOPIN [Concomitant]

REACTIONS (4)
  - GAIT DISTURBANCE [None]
  - HYPOAESTHESIA [None]
  - SENSORY DISTURBANCE [None]
  - SOMNOLENCE [None]
